FAERS Safety Report 7465792-6 (Version None)
Quarter: 2011Q2

REPORT INFORMATION
  Report Type: 
  Country: None (occurrence: None)
  Receive Date: 20110428
  Receipt Date: 20110421
  Transmission Date: 20111010
  Serious: Yes (Death, Life-Threatening, Hospitalization, Other)
  Sender: FDA-Public Use
  Company Number: 2010JP003737

PATIENT
  Age: 34 Year
  Sex: Male
  Weight: 60 kg

DRUGS (24)
  1. KALIMATE (CALCIUM POLYSTYRENE SULFONATE) POWDER [Concomitant]
  2. FUNGUARD (MICAFUNGIN) INJECTION [Concomitant]
  3. PREDNISOLONE [Suspect]
     Indication: RENAL TRANSPLANT
     Dosage: 5 MG, BID, ORAL
     Route: 048
     Dates: start: 20030722, end: 20100102
  4. TANKARU TAIYO (CALCIUM CARBONATE) TABLET [Concomitant]
  5. ENTERONON R (BIFIDOBACTERIUM BIFIDUM, LACTOBACILLUS ACIDOPHILUS, LACTO [Concomitant]
  6. ITRIZOLE(ITRACONAZOLE) CAPSULE [Concomitant]
  7. NAUZELIN (DOMPERIDONE) TABLET [Concomitant]
  8. PURSENNID (SENNOSIDE A+B CALCIUM) TABLET [Concomitant]
  9. AMBISOME [Concomitant]
  10. ZANTAC (RANITIDINE HYDOCHLORIDE) TABLET [Concomitant]
  11. GANCICLOVIR SODIUM [Concomitant]
  12. MICARDIS [Concomitant]
  13. AMOBAN (ZOPICLONE) TABLET [Concomitant]
  14. OPEGAURD NEO (OXIGUTATIONE) [Concomitant]
  15. VORICONAZOLE [Concomitant]
  16. PROGRAF [Suspect]
     Indication: RENAL TRANSPLANT
     Dosage: 0.5 MG, BID, ORAL
     Route: 048
     Dates: start: 20030722, end: 20091225
  17. CELLCEPT [Suspect]
     Indication: RENAL TRANSPLANT
     Dosage: 500 MG, BID, ORAL
     Route: 048
     Dates: start: 20030722, end: 20091222
  18. ADELAT CR (NIFEDIPINE) ORODISPERSIBLE CR TABLET [Concomitant]
  19. MUCODYNE (CARBOCISTEINE) TABLET [Concomitant]
  20. NOVORAPID (INSULIN ASPART) INJECTION [Concomitant]
  21. ALFAROL (ALFACALCIDOL) CAPSULE [Concomitant]
  22. ALLOPURINOL [Concomitant]
  23. HEPARIN [Concomitant]
  24. MINOMYCIN (MINOCYCLINE HYDROCHLORIDE) CAPSULE [Concomitant]

REACTIONS (24)
  - FUNGAL SEPSIS [None]
  - ASPERGILLOSIS [None]
  - FIBRIN DEGRADATION PRODUCTS INCREASED [None]
  - PNEUMOCYSTIS JIROVECI PNEUMONIA [None]
  - SCEDOSPORIUM INFECTION [None]
  - PULMONARY OEDEMA [None]
  - MENINGITIS BACTERIAL [None]
  - PLATELET COUNT DECREASED [None]
  - ACTIVATED PARTIAL THROMBOPLASTIN TIME PROLONGED [None]
  - DEPRESSED LEVEL OF CONSCIOUSNESS [None]
  - CYTOMEGALOVIRUS CHORIORETINITIS [None]
  - CARDIAC VALVE VEGETATION [None]
  - HEADACHE [None]
  - CATHETER SITE HAEMORRHAGE [None]
  - CARDIAC FAILURE ACUTE [None]
  - PULMONARY MYCOSIS [None]
  - NOCARDIOSIS [None]
  - MENINGITIS LISTERIA [None]
  - PROTHROMBIN TIME ABNORMAL [None]
  - GENERAL PHYSICAL HEALTH DETERIORATION [None]
  - FUNGAL ENDOCARDITIS [None]
  - DISSEMINATED INTRAVASCULAR COAGULATION [None]
  - PULMONARY ALVEOLAR HAEMORRHAGE [None]
  - PYREXIA [None]
